FAERS Safety Report 5523949-5 (Version None)
Quarter: 2007Q4

REPORT INFORMATION
  Report Type: 
  Country: None (occurrence: None)
  Receive Date: 20071121
  Receipt Date: 20071109
  Transmission Date: 20080405
  Serious: No
  Sender: FDA-Public Use
  Company Number: SE-AMGEN-US248126

PATIENT
  Age: 28 Year
  Sex: Female

DRUGS (1)
  1. ENBREL [Suspect]
     Indication: PSORIATIC ARTHROPATHY

REACTIONS (4)
  - IMMUNOLOGY TEST ABNORMAL [None]
  - LEUKOPENIA [None]
  - PLEURISY [None]
  - PSORIASIS [None]
